FAERS Safety Report 24702072 (Version 2)
Quarter: 2024Q4

REPORT INFORMATION
  Report Type: Spontaneous
  Country: AU (occurrence: AU)
  Receive Date: 20241205
  Receipt Date: 20241211
  Transmission Date: 20250114
  Serious: Yes (Life-Threatening, Hospitalization)
  Sender: BAYER HEALTHCARE PHARMACEUTICALS INC.
  Company Number: AU-BAYER-2024A172485

PATIENT
  Age: 53 Year
  Sex: Male
  Weight: 89 kg

DRUGS (2)
  1. GADOBUTROL [Suspect]
     Active Substance: GADOBUTROL
     Indication: Magnetic resonance elastography
     Dosage: 7.5 ML, ONCE
     Route: 042
     Dates: start: 20241204, end: 20241205
  2. GADOBUTROL [Suspect]
     Active Substance: GADOBUTROL
     Indication: Magnetic resonance imaging

REACTIONS (4)
  - Loss of consciousness [Recovering/Resolving]
  - Incontinence [Recovering/Resolving]
  - Urticaria [Recovering/Resolving]
  - Anaphylactic reaction [None]

NARRATIVE: CASE EVENT DATE: 20241204
